FAERS Safety Report 9812582 (Version 1)
Quarter: 2014Q1

REPORT INFORMATION
  Report Type: Spontaneous
  Country: AU (occurrence: AU)
  Receive Date: 20140113
  Receipt Date: 20140113
  Transmission Date: 20141002
  Serious: Yes (Other)
  Sender: FDA-Public Use
  Company Number: AU-ROCHE-1331759

PATIENT
  Age: 46 Year
  Sex: Female

DRUGS (5)
  1. DIAZEPAM [Suspect]
     Indication: PRODUCT USED FOR UNKNOWN INDICATION
     Route: 065
  2. CLOPINE [Suspect]
     Indication: BIPOLAR DISORDER
     Route: 048
     Dates: start: 20101224
  3. LEVETIRACETAM [Suspect]
     Indication: PRODUCT USED FOR UNKNOWN INDICATION
     Route: 065
  4. RISPERIDONE [Suspect]
     Indication: PRODUCT USED FOR UNKNOWN INDICATION
     Route: 065
  5. ESCITALOPRAM [Suspect]
     Indication: PRODUCT USED FOR UNKNOWN INDICATION
     Route: 065

REACTIONS (5)
  - Renal impairment [Recovered/Resolved]
  - Weight increased [Unknown]
  - Hepatic function abnormal [Unknown]
  - Hepatic steatosis [Unknown]
  - Diabetes mellitus [Unknown]
